FAERS Safety Report 18049795 (Version 1)
Quarter: 2020Q3

REPORT INFORMATION
  Report Type: Spontaneous
  Country: US (occurrence: US)
  Receive Date: 20200721
  Receipt Date: 20200721
  Transmission Date: 20201103
  Serious: Yes (Disabling)
  Sender: FDA-Public Use
  Company Number: None

PATIENT
  Age: 52 Year
  Sex: Male
  Weight: 102.8 kg

DRUGS (23)
  1. MULTIVITAMIN WITH IRON?MINERAL [Concomitant]
     Dates: start: 20200714, end: 20200721
  2. CISATRACURIUM. [Concomitant]
     Active Substance: CISATRACURIUM
     Dates: start: 20200713, end: 20200721
  3. DILTIAZEM. [Concomitant]
     Active Substance: DILTIAZEM
     Dates: start: 20200713, end: 20200715
  4. MUPIROCIN. [Concomitant]
     Active Substance: MUPIROCIN
     Dates: start: 20200713
  5. WHITE PETROLATUM?MINERAL OIL OPHTHALMIC OINTMENT [Concomitant]
     Dates: start: 20200714, end: 20200721
  6. FAMOTIDINE. [Concomitant]
     Active Substance: FAMOTIDINE
     Dates: start: 20200714, end: 20200721
  7. NOREPINEPHRINE. [Concomitant]
     Active Substance: NOREPINEPHRINE
     Dates: start: 20200713, end: 20200719
  8. ASPIRIN 81 MG [Concomitant]
     Active Substance: ASPIRIN
     Dates: start: 20200713, end: 20200713
  9. UNJURY [Concomitant]
     Dates: start: 20200714, end: 20200721
  10. PROPOFOL. [Concomitant]
     Active Substance: PROPOFOL
     Dates: start: 20200713, end: 20200720
  11. ENOXAPARIN [Concomitant]
     Active Substance: ENOXAPARIN
     Dates: start: 20200712, end: 20200713
  12. CETYLPYRIDINIUM CHLORIDE. [Concomitant]
     Active Substance: CETYLPYRIDINIUM CHLORIDE
     Dates: start: 20200713, end: 20200721
  13. FUROSEMIDE. [Concomitant]
     Active Substance: FUROSEMIDE
     Dates: start: 20200714, end: 20200718
  14. MIDAZOLAM. [Concomitant]
     Active Substance: MIDAZOLAM
     Dates: start: 20200713, end: 20200720
  15. CHLORHEXIDINE [Concomitant]
     Active Substance: CHLORHEXIDINE
     Dates: start: 20200713, end: 20200721
  16. DEXAMETHASONE. [Concomitant]
     Active Substance: DEXAMETHASONE
     Dates: start: 20200712, end: 20200721
  17. HEPARIN [Concomitant]
     Active Substance: HEPARIN SODIUM
     Dates: start: 20200713, end: 20200721
  18. INSULIN LISPRO [Concomitant]
     Active Substance: INSULIN LISPRO
     Dates: start: 20200715, end: 20200719
  19. POLYETHYLENE GLYCOL PACKET [Concomitant]
     Dates: start: 20200715, end: 20200719
  20. REMDESIVIR. [Suspect]
     Active Substance: REMDESIVIR
     Indication: COVID-19
     Dosage: ?          OTHER FREQUENCY:ONCE;?
     Route: 042
     Dates: start: 20200713, end: 20200714
  21. REMDESIVIR. [Suspect]
     Active Substance: REMDESIVIR
     Indication: COVID-19
     Route: 042
     Dates: start: 20200714, end: 20200717
  22. FENTYNAL [Concomitant]
     Active Substance: FENTANYL
     Dates: start: 20200713, end: 20200720
  23. SENNOSIDES. [Concomitant]
     Active Substance: SENNOSIDES
     Dates: start: 20200715, end: 20200720

REACTIONS (1)
  - Acute kidney injury [None]

NARRATIVE: CASE EVENT DATE: 20200714
